FAERS Safety Report 10658275 (Version 1)
Quarter: 2014Q4

REPORT INFORMATION
  Report Type: Spontaneous
  Country: US (occurrence: None)
  Receive Date: 20141205
  Receipt Date: 20141205
  Transmission Date: 20150529
  Serious: Yes (Other)
  Sender: FDA-Public Use
  Company Number: USA-2014110406

PATIENT
  Age: 73 Year
  Sex: Male

DRUGS (1)
  1. POMALYST [Suspect]
     Active Substance: POMALIDOMIDE
     Indication: PLASMA CELL MYELOMA
     Dosage: 3 MG,  21 IN 28 D, PO
     Route: 048
     Dates: start: 201410, end: 20141027

REACTIONS (2)
  - Blood test abnormal [None]
  - White blood cell count decreased [None]

NARRATIVE: CASE EVENT DATE: 20141027
